FAERS Safety Report 10732182 (Version 1)
Quarter: 2015Q1

REPORT INFORMATION
  Report Type: Spontaneous
  Country: US (occurrence: None)
  Receive Date: 20150120
  Receipt Date: 20150120
  Transmission Date: 20150721
  Serious: Yes (Death)
  Sender: FDA-Public Use
  Company Number: 2015010021

PATIENT
  Age: 48 Year
  Sex: Female

DRUGS (3)
  1. OXYCODONE (OXYCODONE) [Suspect]
     Active Substance: OXYCODONE
  2. ZOLPIDEM (ZOLPIDEM) [Suspect]
     Active Substance: ZOLPIDEM TARTRATE
  3. BUPROPION (BUPROPION) [Suspect]
     Active Substance: BUPROPION

REACTIONS (2)
  - Drug abuse [None]
  - Exposure via ingestion [None]

NARRATIVE: CASE EVENT DATE: 2013
